FAERS Safety Report 23363119 (Version 1)
Quarter: 2024Q1

REPORT INFORMATION
  Report Type: Spontaneous
  Country: US (occurrence: None)
  Receive Date: 20240103
  Receipt Date: 20240103
  Transmission Date: 20240410
  Serious: Yes (Disabling)
  Sender: FDA-Public Use
  Company Number: None

PATIENT
  Age: 80 Year
  Sex: Female
  Weight: 74.25 kg

DRUGS (5)
  1. SYFOVRE [Suspect]
     Active Substance: PEGCETACOPLAN
     Indication: Dry age-related macular degeneration
     Dates: start: 20230518, end: 20230518
  2. PROLIA [Concomitant]
     Active Substance: DENOSUMAB
  3. AREDS2 [Concomitant]
  4. CALCIUM [Concomitant]
     Active Substance: CALCIUM
  5. vits [Concomitant]

REACTIONS (4)
  - Intraocular pressure increased [None]
  - Ocular hyperaemia [None]
  - Eye inflammation [None]
  - Intra-ocular injection complication [None]

NARRATIVE: CASE EVENT DATE: 20230518
